FAERS Safety Report 6681716-3 (Version None)
Quarter: 2010Q2

REPORT INFORMATION
  Report Type: 
  Country: None (occurrence: None)
  Receive Date: 20100412
  Receipt Date: 20100326
  Transmission Date: 20101027
  Serious: Yes (Hospitalization)
  Sender: FDA-Public Use
  Company Number: 2010001057

PATIENT
  Age: 59 Year
  Sex: Female

DRUGS (12)
  1. ERLOTINIB (ERLOTINIB) (TABLET) (ERLOTINIB) [Suspect]
     Indication: COLORECTAL CANCER METASTATIC
     Dosage: 2100 MG, ORAL
     Route: 048
     Dates: start: 20070926, end: 20080228
  2. BEVACIZUMAB [Suspect]
     Indication: COLORECTAL CANCER METASTATIC
     Dosage: 7.5 MG/KG, Q3W, INTRAVENOUS
     Route: 042
     Dates: start: 20070221
  3. CAPECTIABINE (CAPECITABINE) [Suspect]
     Indication: COLORECTAL CANCER METASTATIC
     Dosage: 3000 MG, ORAL
     Route: 048
     Dates: start: 20070221
  4. OXALIPLATIN (OXALIPATIN) [Suspect]
     Indication: COLORECTAL CANCER METASTATIC
     Dosage: 130 MG/M2, INTRAVENOUS
     Route: 042
     Dates: start: 20070221
  5. COZAAR [Concomitant]
  6. SIMVASTATIN [Concomitant]
  7. OMEPRAZOLE [Concomitant]
  8. ACETAMINOPHEN [Concomitant]
  9. TRAMADOL HCL [Concomitant]
  10. COZAAR PLUS (HYZAAR) [Concomitant]
  11. ORFIDAL (LORAZEPAM)C= [Concomitant]
  12. PANTOPRAZOLE SODIUM [Concomitant]

REACTIONS (6)
  - ACUTE PRERENAL FAILURE [None]
  - ENTERITIS [None]
  - INFECTION [None]
  - NEUTROPENIA [None]
  - PANCREATITIS ACUTE [None]
  - PYREXIA [None]
